FAERS Safety Report 10262031 (Version 1)
Quarter: 2014Q2

REPORT INFORMATION
  Report Type: Spontaneous
  Country: CA (occurrence: CA)
  Receive Date: 20140626
  Receipt Date: 20140626
  Transmission Date: 20141212
  Serious: Yes (Other)
  Sender: FDA-Public Use
  Company Number: CA-GLAXOSMITHKLINE-A1077913A

PATIENT
  Sex: Female
  Weight: 64 kg

DRUGS (1)
  1. BENLYSTA [Suspect]
     Indication: SYSTEMIC LUPUS ERYTHEMATOSUS
     Dosage: 640MG SEE DOSAGE TEXT
     Route: 042
     Dates: start: 20140424

REACTIONS (1)
  - Neuropsychiatric lupus [Unknown]
